FAERS Safety Report 23886205 (Version 3)
Quarter: 2024Q4

REPORT INFORMATION
  Report Type: Spontaneous
  Country: US (occurrence: US)
  Receive Date: 20240522
  Receipt Date: 20241030
  Transmission Date: 20250115
  Serious: No
  Sender: CALLIDITAS THERAPEUTICS AB
  Company Number: US-Calliditas-2024CAL00753

PATIENT
  Age: 35 Year
  Sex: Female
  Weight: 89.6 kg

DRUGS (1)
  1. TARPEYO [Suspect]
     Active Substance: BUDESONIDE
     Indication: IgA nephropathy
     Route: 048
     Dates: start: 20240320

REACTIONS (14)
  - Increased appetite [Unknown]
  - Weight increased [Unknown]
  - Therapeutic response unexpected [Unknown]
  - Abdominal pain upper [Unknown]
  - Product dose omission issue [Unknown]
  - Irritable bowel syndrome [Unknown]
  - Cushingoid [Unknown]
  - Pruritus [Unknown]
  - Blood pressure increased [Unknown]
  - Thirst [Unknown]
  - Dehydration [Unknown]
  - Menstrual disorder [Unknown]
  - Gastrointestinal disorder [Unknown]
  - Drug ineffective [Unknown]
